FAERS Safety Report 8447693-X (Version None)
Quarter: 2012Q2

REPORT INFORMATION
  Report Type: 
  Country: None (occurrence: None)
  Receive Date: 20120619
  Receipt Date: 20120615
  Transmission Date: 20120825
  Serious: Yes (Death, Other)
  Sender: FDA-Public Use
  Company Number: US-PFIZER INC-2012107008

PATIENT
  Age: 81 Year
  Sex: Female

DRUGS (1)
  1. REVATIO [Suspect]
     Indication: PULMONARY HYPERTENSION
     Dosage: 20 MG, 3X/DAY
     Dates: start: 20090101, end: 20120422

REACTIONS (3)
  - DYSPHAGIA [None]
  - CARDIAC FAILURE [None]
  - PAIN [None]
